FAERS Safety Report 9733650 (Version 1)
Quarter: 2013Q4

REPORT INFORMATION
  Report Type: Spontaneous
  Country: US (occurrence: US)
  Receive Date: 20131205
  Receipt Date: 20131205
  Transmission Date: 20140711
  Serious: No
  Sender: FDA-Public Use
  Company Number: US-BAYER-2013-148355

PATIENT
  Age: 66 Year
  Sex: Female
  Weight: 70 kg

DRUGS (3)
  1. ALEVE LIQUID GELS [Suspect]
     Indication: ARTHRITIS
     Dosage: 1 DF, BID
     Route: 048
     Dates: start: 201311, end: 20131202
  2. ALEVE TABLET [Suspect]
     Indication: ARTHRITIS
     Dosage: 1 DF, BID
     Route: 048
     Dates: start: 201311, end: 20131202
  3. GLUCOSAMINE [Concomitant]

REACTIONS (2)
  - Alopecia [Not Recovered/Not Resolved]
  - Incorrect drug administration duration [None]
